FAERS Safety Report 16833799 (Version 4)
Quarter: 2019Q4

REPORT INFORMATION
  Report Type: Spontaneous
  Country: IR (occurrence: IR)
  Receive Date: 20190920
  Receipt Date: 20191205
  Transmission Date: 20200122
  Serious: Yes (Hospitalization, Other)
  Sender: FDA-Public Use
  Company Number: IR-SA-2019SA257423

PATIENT
  Age: 60 Year
  Sex: Female

DRUGS (3)
  1. METFORMIN HYDROCHLORIDE. [Suspect]
     Active Substance: METFORMIN HYDROCHLORIDE
     Dosage: UNK
     Route: 065
  2. NOVORAPID [Concomitant]
     Active Substance: INSULIN ASPART
     Indication: DIABETES MELLITUS
     Dosage: UNK
     Route: 058
     Dates: start: 20190901
  3. TOUJEO [Suspect]
     Active Substance: INSULIN GLARGINE
     Indication: DIABETES MELLITUS
     Dosage: 100 U, UNK
     Route: 058
     Dates: start: 20190901

REACTIONS (4)
  - Therapeutic response decreased [Recovering/Resolving]
  - Diabetes mellitus inadequate control [Unknown]
  - Hyperglycaemia [Recovering/Resolving]
  - Blood creatinine abnormal [Unknown]

NARRATIVE: CASE EVENT DATE: 20190901
